FAERS Safety Report 13126178 (Version 1)
Quarter: 2017Q1

REPORT INFORMATION
  Report Type: Spontaneous
  Country: ES (occurrence: ES)
  Receive Date: 20170118
  Receipt Date: 20170118
  Transmission Date: 20170428
  Serious: Yes (Other)
  Sender: FDA-Public Use
  Company Number: ES-TEVA-728934ISR

PATIENT
  Sex: Male

DRUGS (1)
  1. COPAXONE [Suspect]
     Active Substance: GLATIRAMER ACETATE
     Indication: MULTIPLE SCLEROSIS
     Dosage: COPAXONE 40 MG/ML
     Route: 058
     Dates: start: 20161020, end: 20170106

REACTIONS (12)
  - Injection site warmth [Recovered/Resolved]
  - Choking sensation [Recovered/Resolved]
  - Peripheral swelling [Unknown]
  - Lip swelling [Recovered/Resolved]
  - Muscular weakness [Recovered/Resolved]
  - Muscle spasms [Recovered/Resolved]
  - Hypersensitivity [Recovered/Resolved]
  - Injection site urticaria [Recovered/Resolved]
  - Feeling abnormal [Recovered/Resolved]
  - Swelling face [Recovered/Resolved]
  - Injection site swelling [Recovered/Resolved]
  - Injection site induration [Recovered/Resolved]

NARRATIVE: CASE EVENT DATE: 20170104
